APPROVED DRUG PRODUCT: BUPROPION HYDROCHLORIDE
Active Ingredient: BUPROPION HYDROCHLORIDE
Strength: 150MG
Dosage Form/Route: TABLET, EXTENDED RELEASE;ORAL
Application: A211200 | Product #002 | TE Code: AB3
Applicant: ZHEJIANG JUTAI PHARMACEUTICAL CO LTD
Approved: Apr 29, 2020 | RLD: No | RS: No | Type: RX